FAERS Safety Report 8136082-3 (Version None)
Quarter: 2012Q1

REPORT INFORMATION
  Report Type: 
  Country: None (occurrence: None)
  Receive Date: 20120214
  Receipt Date: 20120207
  Transmission Date: 20120608
  Serious: Yes (Hospitalization, Other)
  Sender: FDA-Public Use
  Company Number: RU-ABBOTT-10P-251-0694406-00

PATIENT
  Sex: Male
  Weight: 26 kg

DRUGS (4)
  1. METHOTREXATE [Concomitant]
     Indication: JUVENILE ARTHRITIS
     Route: 030
     Dates: start: 20070801
  2. HUMIRA [Suspect]
     Indication: UVEITIS
     Route: 058
     Dates: start: 20090101, end: 20101001
  3. CYCLOSPORINE [Concomitant]
     Indication: UVEITIS
     Route: 048
     Dates: start: 20080301, end: 20101001
  4. HUMIRA [Suspect]

REACTIONS (2)
  - PULMONARY TUBERCULOSIS [None]
  - GASTRODUODENITIS [None]
